FAERS Safety Report 7714786-1 (Version None)
Quarter: 2011Q3

REPORT INFORMATION
  Report Type: 
  Country: None (occurrence: None)
  Receive Date: 20110829
  Receipt Date: 20110817
  Transmission Date: 20111222
  Serious: Yes (Hospitalization, Other)
  Sender: FDA-Public Use
  Company Number: US-BAYER-2011-023479

PATIENT
  Age: 37 Year
  Sex: Female
  Weight: 61 kg

DRUGS (5)
  1. LORAZEPAM [Concomitant]
     Indication: ANXIETY
     Dosage: 0.5 MG, UNK
     Route: 048
  2. YAZ [Suspect]
     Indication: PREMENSTRUAL SYNDROME
     Dosage: UNK
     Dates: start: 20070601, end: 20100601
  3. DIPHENOXYLATE [Concomitant]
     Indication: DIARRHOEA
     Route: 048
  4. DROSPIRENONE AND ETHINYL ESTRADIOL [Suspect]
     Indication: PREMENSTRUAL SYNDROME
     Dosage: UNK
     Dates: start: 20100701, end: 20100901
  5. AMITRIPTYLINE HCL [Concomitant]
     Dosage: 10 MG, UNK
     Route: 048

REACTIONS (13)
  - CHOLECYSTITIS CHRONIC [None]
  - ANXIETY [None]
  - SCAR [None]
  - ABDOMINAL DISTENSION [None]
  - FLATULENCE [None]
  - DYSPEPSIA [None]
  - CHOLECYSTITIS [None]
  - GALLBLADDER DISORDER [None]
  - CONSTIPATION [None]
  - PAIN [None]
  - INJURY [None]
  - DIARRHOEA [None]
  - DEPRESSION [None]
